FAERS Safety Report 5749064-3 (Version None)
Quarter: 2008Q2

REPORT INFORMATION
  Report Type: 
  Country: None (occurrence: None)
  Receive Date: 20080527
  Receipt Date: 20080507
  Transmission Date: 20081010
  Serious: Yes (Death, Other)
  Sender: FDA-Public Use
  Company Number: US-BAYER-200818469GPV

PATIENT

DRUGS (8)
  1. ALEMTUZUMAB [Suspect]
     Indication: CHRONIC LYMPHOCYTIC LEUKAEMIA
     Dosage: TOTAL DAILY DOSE: 3 MG
     Route: 042
  2. ALEMTUZUMAB [Suspect]
     Dosage: TOTAL DAILY DOSE: 30 MG
     Route: 042
  3. ALEMTUZUMAB [Suspect]
     Dosage: TOTAL DAILY DOSE: 30 MG
     Route: 042
  4. ALEMTUZUMAB [Suspect]
     Dosage: TOTAL DAILY DOSE: 10 MG
     Route: 042
  5. DIPHENHYDRAMINE HCL [Concomitant]
     Indication: PROPHYLAXIS
     Route: 065
  6. ACETAMINOPHEN [Concomitant]
     Indication: PROPHYLAXIS
     Route: 065
  7. SULFAMETHOXAZOLE AND TRIMETHOPRIM [Concomitant]
     Indication: INFECTION PROPHYLAXIS
     Route: 048
  8. VALACYCLOVIR [Concomitant]
     Indication: ANTIVIRAL PROPHYLAXIS
     Dosage: TOTAL DAILY DOSE: 500 MG
     Route: 065

REACTIONS (35)
  - ACINETOBACTER INFECTION [None]
  - ANAEMIA [None]
  - ANGINA PECTORIS [None]
  - ASPERGILLOSIS [None]
  - BACTERIAL INFECTION [None]
  - CARDIAC FAILURE CONGESTIVE [None]
  - CHILLS [None]
  - CORYNEBACTERIUM INFECTION [None]
  - CYTOKINE RELEASE SYNDROME [None]
  - CYTOMEGALOVIRUS INFECTION [None]
  - DYSPNOEA [None]
  - ENTEROCOCCAL INFECTION [None]
  - ESCHERICHIA INFECTION [None]
  - HEADACHE [None]
  - HERPES SIMPLEX [None]
  - HERPES ZOSTER [None]
  - HYPOTENSION [None]
  - LYMPHOPENIA [None]
  - MICROCOCCUS INFECTION [None]
  - MYCOBACTERIAL INFECTION [None]
  - NAUSEA [None]
  - NEUTROPENIA [None]
  - OEDEMA PERIPHERAL [None]
  - PARAINFLUENZAE VIRUS INFECTION [None]
  - PERITONITIS [None]
  - PNEUMOCYSTIS JIROVECI PNEUMONIA [None]
  - PNEUMONIA [None]
  - PYREXIA [None]
  - RASH [None]
  - STAPHYLOCOCCAL BACTERAEMIA [None]
  - STAPHYLOCOCCAL INFECTION [None]
  - STAPHYLOCOCCAL SEPSIS [None]
  - STENOTROPHOMONAS INFECTION [None]
  - THROMBOCYTOPENIA [None]
  - ZYGOMYCOSIS [None]
